FAERS Safety Report 18523704 (Version 1)
Quarter: 2020Q4

REPORT INFORMATION
  Report Type: Spontaneous
  Country: US (occurrence: US)
  Receive Date: 20201119
  Receipt Date: 20201119
  Transmission Date: 20210114
  Serious: Yes (Death, Other)
  Sender: FDA-Public Use
  Company Number: US-009507513-2011USA008759

PATIENT
  Sex: Female

DRUGS (5)
  1. CINRYZE [Suspect]
     Active Substance: HUMAN C1-ESTERASE INHIBITOR
     Indication: HEREDITARY ANGIOEDEMA
     Dosage: UNK
  2. KALBITOR [Suspect]
     Active Substance: ECALLANTIDE
     Indication: HEREDITARY ANGIOEDEMA
     Dosage: UNKNOWN
     Route: 058
     Dates: start: 20110604
  3. CINRYZE [Suspect]
     Active Substance: HUMAN C1-ESTERASE INHIBITOR
     Indication: PROPHYLAXIS
     Dosage: 1000 UNITS, OTHER, AS REQ^D
     Route: 065
  4. PRINIVIL [Suspect]
     Active Substance: LISINOPRIL
     Indication: ACCIDENTAL OVERDOSE
     Dosage: NOT APPLICABLE
     Route: 065
  5. CLONAZEPAM. [Concomitant]
     Active Substance: CLONAZEPAM
     Indication: STRESS
     Dosage: UNKNOWN
     Route: 065

REACTIONS (6)
  - Hypoxia [Fatal]
  - Inappropriate schedule of product administration [Unknown]
  - Hereditary angioedema [Not Recovered/Not Resolved]
  - Hypotension [Fatal]
  - Cardiac disorder [Fatal]
  - Accidental exposure to product [Fatal]

NARRATIVE: CASE EVENT DATE: 20110604
